FAERS Safety Report 17580779 (Version 1)
Quarter: 2020Q1

REPORT INFORMATION
  Report Type: Spontaneous
  Country: US (occurrence: US)
  Receive Date: 20200310
  Receipt Date: 20200310
  Transmission Date: 20200409
  Serious: No
  Sender: FDA-Public Use
  Company Number: None

PATIENT
  Age: 75 Year
  Sex: Male
  Weight: 74.25 kg

DRUGS (3)
  1. EZETIMBE [Concomitant]
     Active Substance: EZETIMIBE
  2. SIMVASTATIN. [Concomitant]
     Active Substance: SIMVASTATIN
  3. DIAL ANTIBACTERIAL BAR [Suspect]
     Active Substance: BENZALKONIUM CHLORIDE
     Indication: PERSONAL HYGIENE
     Dates: start: 20200224, end: 20200227

REACTIONS (4)
  - Application site rash [None]
  - Application site pruritus [None]
  - Pain [None]
  - Insomnia [None]

NARRATIVE: CASE EVENT DATE: 20200224
